FAERS Safety Report 6790779-6 (Version None)
Quarter: 2010Q2

REPORT INFORMATION
  Report Type: 
  Country: None (occurrence: None)
  Receive Date: 20100624
  Receipt Date: 20100615
  Transmission Date: 20101027
  Serious: Yes (Life-Threatening, Hospitalization)
  Sender: FDA-Public Use
  Company Number: IT-CVT-100382

PATIENT

DRUGS (16)
  1. RANEXA [Suspect]
     Indication: ANGINA PECTORIS
     Dosage: 750 MG, QD
     Route: 048
     Dates: start: 20100601, end: 20100605
  2. SERENASE                           /00027401/ [Suspect]
     Indication: DRUG USE FOR UNKNOWN INDICATION
  3. ISMO [Concomitant]
  4. LANOXIN [Concomitant]
  5. LASIX [Concomitant]
  6. CLEXANE [Concomitant]
  7. ASPIRIN [Concomitant]
  8. SPIRIVA [Concomitant]
  9. TAPAZOLE [Concomitant]
  10. SIVASTIN [Concomitant]
  11. PLAVIX [Concomitant]
  12. BREVA [Concomitant]
  13. CLENIL [Concomitant]
  14. TRIATEC [Concomitant]
  15. TERAPROST [Concomitant]
  16. PANTORC [Concomitant]

REACTIONS (2)
  - DRUG INTERACTION [None]
  - TORSADE DE POINTES [None]
